FAERS Safety Report 9233812 (Version 1)
Quarter: 2013Q2

REPORT INFORMATION
  Report Type: Spontaneous
  Country: US (occurrence: US)
  Receive Date: 20130416
  Receipt Date: 20130416
  Transmission Date: 20140414
  Serious: Yes (Other)
  Sender: FDA-Public Use
  Company Number: US-MYLANLABS-2012S1016886

PATIENT
  Age: 64 Year
  Sex: Female
  Weight: 82.1 kg

DRUGS (2)
  1. NITROFURANTOIN MONOHYDRATE/MACROCRYSTALS CAPSULES [Suspect]
     Indication: CYSTITIS
     Dates: start: 20120813, end: 20120813
  2. THYROID SUPPLEMENT [Concomitant]
     Indication: HYPOTHYROIDISM

REACTIONS (1)
  - Anaphylactic reaction [Recovered/Resolved]
